FAERS Safety Report 23080255 (Version 2)
Quarter: 2023Q4

REPORT INFORMATION
  Report Type: Report from Study
  Country: US (occurrence: US)
  Receive Date: 20231018
  Receipt Date: 20231128
  Transmission Date: 20240109
  Serious: Yes (Hospitalization)
  Sender: FDA-Public Use
  Company Number: US-ALNYLAM PHARMACEUTICALS, INC.-ALN-2023-005393

PATIENT

DRUGS (1)
  1. GIVLAARI [Suspect]
     Active Substance: GIVOSIRAN SODIUM
     Indication: Porphyria
     Dosage: UNK
     Route: 065
     Dates: start: 20230411, end: 20230822

REACTIONS (5)
  - Seizure [Unknown]
  - Blood glucose decreased [Unknown]
  - Vomiting [Recovering/Resolving]
  - Nausea [Unknown]
  - Liver injury [Unknown]

NARRATIVE: CASE EVENT DATE: 20231001
